FAERS Safety Report 12548487 (Version 1)
Quarter: 2016Q3

REPORT INFORMATION
  Report Type: Spontaneous
  Country: US (occurrence: None)
  Receive Date: 20160711
  Receipt Date: 20160711
  Transmission Date: 20161109
  Serious: No
  Sender: FDA-Public Use
  Company Number: None

PATIENT
  Age: 58 Year
  Sex: Male

DRUGS (5)
  1. LISINOPRIL. [Concomitant]
     Active Substance: LISINOPRIL
  2. IBUPROFEN. [Concomitant]
     Active Substance: IBUPROFEN
  3. TUMS EX [Concomitant]
     Active Substance: CALCIUM CARBONATE
  4. HARVONI [Suspect]
     Active Substance: LEDIPASVIR\SOFOSBUVIR
     Indication: HEPATITIS C
     Dosage: ONE TABLET EVERY DAY BY MOUTH
     Route: 048
     Dates: start: 201605
  5. LISINOPRIL. [Concomitant]
     Active Substance: LISINOPRIL

REACTIONS (1)
  - Headache [None]

NARRATIVE: CASE EVENT DATE: 201605
